FAERS Safety Report 25439022 (Version 1)
Quarter: 2025Q2

REPORT INFORMATION
  Report Type: Spontaneous
  Country: TW (occurrence: TW)
  Receive Date: 20250616
  Receipt Date: 20250616
  Transmission Date: 20250716
  Serious: Yes (Other)
  Sender: SANDOZ
  Company Number: None

PATIENT
  Age: 58 Year
  Sex: Male
  Weight: 93.7 kg

DRUGS (8)
  1. DIPRIVAN [Suspect]
     Active Substance: PROPOFOL
     Indication: Induction of anaesthesia
     Route: 041
     Dates: start: 20250513, end: 20250513
  2. DECADRON (DEXAMETHASONE SODIUM PHOSPHATE) [Suspect]
     Active Substance: DEXAMETHASONE SODIUM PHOSPHATE
     Indication: Induction of anaesthesia
     Route: 041
     Dates: start: 20250513, end: 20250513
  3. FENTANYL CITRATE [Suspect]
     Active Substance: FENTANYL CITRATE
     Indication: Induction of anaesthesia
     Route: 041
     Dates: start: 20250513, end: 20250513
  4. GLYCOPYRROLATE [Suspect]
     Active Substance: GLYCOPYRROLATE
     Indication: Induction of anaesthesia
     Route: 041
     Dates: start: 20250513, end: 20250513
  5. KETOROLAC TROMETHAMINE [Suspect]
     Active Substance: KETOROLAC TROMETHAMINE
     Indication: Induction of anaesthesia
     Route: 041
     Dates: start: 20250513, end: 20250513
  6. NIMBEX [Suspect]
     Active Substance: CISATRACURIUM BESYLATE
     Indication: Induction of anaesthesia
     Route: 065
     Dates: start: 20250513, end: 20250513
  7. CEFACLOR [Suspect]
     Active Substance: CEFACLOR
     Indication: Induction of anaesthesia
     Route: 041
     Dates: start: 20250513, end: 20250513
  8. XYLOCAINE [Suspect]
     Active Substance: LIDOCAINE HYDROCHLORIDE
     Indication: Induction of anaesthesia
     Route: 041
     Dates: start: 20250513, end: 20250513

REACTIONS (1)
  - Anaphylactic shock [Recovered/Resolved]

NARRATIVE: CASE EVENT DATE: 20250513
